FAERS Safety Report 25180582 (Version 1)
Quarter: 2025Q2

REPORT INFORMATION
  Report Type: Spontaneous
  Country: US (occurrence: None)
  Receive Date: 20250409
  Receipt Date: 20250409
  Transmission Date: 20250716
  Serious: Yes (Hospitalization)
  Sender: FDA-CTU
  Company Number: None

PATIENT
  Age: 67 Year
  Sex: Male
  Weight: 101.6 kg

DRUGS (3)
  1. TOCILIZUMAB [Suspect]
     Active Substance: TOCILIZUMAB
  2. SOLU-MEDROL [Suspect]
     Active Substance: METHYLPREDNISOLONE SODIUM SUCCINATE
  3. LOSARTAN [Suspect]
     Active Substance: LOSARTAN

REACTIONS (4)
  - Weight increased [None]
  - Oedema peripheral [None]
  - Hypervolaemia [None]
  - Blood creatinine increased [None]

NARRATIVE: CASE EVENT DATE: 20250402
